FAERS Safety Report 19589388 (Version 1)
Quarter: 2021Q3

REPORT INFORMATION
  Report Type: Spontaneous
  Country: JP (occurrence: JP)
  Receive Date: 20210721
  Receipt Date: 20210721
  Transmission Date: 20211014
  Serious: Yes (Hospitalization, Other)
  Sender: FDA-Public Use
  Company Number: JP-LUPIN PHARMACEUTICALS INC.-2021-12436

PATIENT
  Age: 41 Year
  Sex: Male

DRUGS (18)
  1. CLOBAZAM. [Interacting]
     Active Substance: CLOBAZAM
     Indication: HEMICONVULSION-HEMIPLEGIA-EPILEPSY SYNDROME
     Dosage: 5 MILLIGRAM, TID, GIVEN THRICE DAILY (ALL IN EQUALLY DIVIDED DOSES)
     Route: 065
  2. VALPROATE [Concomitant]
     Active Substance: VALPROIC ACID
     Dosage: 520 MILLIGRAM, TID, GIVEN THRICE DAILY (ALL IN EQUALLY DIVIDED DOSES)
     Route: 065
  3. CLOBAZAM. [Interacting]
     Active Substance: CLOBAZAM
     Dosage: 0.5 MILLIGRAM
     Route: 065
  4. CLONAZEPAM. [Concomitant]
     Active Substance: CLONAZEPAM
     Dosage: 0.5 MILLIGRAM, QD
     Route: 065
  5. CLOBAZAM. [Interacting]
     Active Substance: CLOBAZAM
     Dosage: 20 MILLIGRAM, TID
     Route: 065
  6. VALPROATE [Concomitant]
     Active Substance: VALPROIC ACID
     Dosage: 520 MILLIGRAM, TID, GIVEN THRICE DAILY (ALL IN EQUALLY DIVIDED DOSES)
     Route: 065
  7. LEVETIRACETAM. [Concomitant]
     Active Substance: LEVETIRACETAM
     Indication: HEMICONVULSION-HEMIPLEGIA-EPILEPSY SYNDROME
     Dosage: 3000 MILLIGRAM, TID, GIVEN THRICE DAILY (ALL IN EQUALLY DIVIDED DOSES)
     Route: 065
  8. LEVETIRACETAM. [Concomitant]
     Active Substance: LEVETIRACETAM
     Dosage: 2000 MILLIGRAM, TID, GIVEN THRICE DAILY (ALL IN EQUALLY DIVIDED DOSES)
     Route: 065
  9. PHENYTOIN SODIUM. [Interacting]
     Active Substance: PHENYTOIN SODIUM
     Dosage: 220 MILLIGRAM, BID
     Route: 065
  10. ZONISAMIDE. [Concomitant]
     Active Substance: ZONISAMIDE
     Dosage: 500 MILLIGRAM, TID,  GIVEN THRICE DAILY (ALL IN EQUALLY DIVIDED DOSES)
     Route: 065
  11. PHENYTOIN SODIUM. [Interacting]
     Active Substance: PHENYTOIN SODIUM
     Dosage: 150 MILLIGRAM, BID
     Route: 065
  12. VALPROATE [Concomitant]
     Active Substance: VALPROIC ACID
     Dosage: 400 MILLIGRAM, TID, GIVEN THRICE DAILY (ALL IN EQUALLY DIVIDED DOSES)
     Route: 065
  13. ZONISAMIDE. [Concomitant]
     Active Substance: ZONISAMIDE
     Indication: HEMICONVULSION-HEMIPLEGIA-EPILEPSY SYNDROME
     Dosage: 300 MILLIGRAM, TID,  GIVEN THRICE DAILY (ALL IN EQUALLY DIVIDED DOSES)
     Route: 065
  14. PHENYTOIN SODIUM. [Suspect]
     Active Substance: PHENYTOIN SODIUM
     Indication: HEMICONVULSION-HEMIPLEGIA-EPILEPSY SYNDROME
     Dosage: 300 MILLIGRAM, BID
     Route: 065
  15. LAMOTRIGINE. [Concomitant]
     Active Substance: LAMOTRIGINE
     Indication: HEMICONVULSION-HEMIPLEGIA-EPILEPSY SYNDROME
     Dosage: 225 MILLIGRAM, TID, GIVEN THRICE DAILY (ALL IN EQUALLY DIVIDED DOSES)
     Route: 065
  16. CLONAZEPAM. [Concomitant]
     Active Substance: CLONAZEPAM
     Indication: HEMICONVULSION-HEMIPLEGIA-EPILEPSY SYNDROME
     Dosage: 1.5 MILLIGRAM, QD
     Route: 065
  17. VALPROATE [Concomitant]
     Active Substance: VALPROIC ACID
     Indication: HEMICONVULSION-HEMIPLEGIA-EPILEPSY SYNDROME
     Dosage: 800 MILLIGRAM, TID, GIVEN THRICE DAILY (ALL IN EQUALLY DIVIDED DOSES)
     Route: 065
  18. CARBAMAZEPINE. [Concomitant]
     Active Substance: CARBAMAZEPINE
     Indication: HEMICONVULSION-HEMIPLEGIA-EPILEPSY SYNDROME
     Dosage: 500 MILLIGRAM, BID
     Route: 065

REACTIONS (11)
  - Cerebellar atrophy [Unknown]
  - Hyporeflexia [Not Recovered/Not Resolved]
  - Drug level increased [Recovering/Resolving]
  - Drug interaction [Unknown]
  - Dysmetria [Unknown]
  - Nystagmus [Recovered/Resolved]
  - Clonus [Unknown]
  - Hypokinesia [Not Recovered/Not Resolved]
  - Neuropathy peripheral [Unknown]
  - Hypercapnia [Recovering/Resolving]
  - Hypoventilation [Recovered/Resolved]
